FAERS Safety Report 21503243 (Version 1)
Quarter: 2022Q4

REPORT INFORMATION
  Report Type: Spontaneous
  Country: US (occurrence: None)
  Receive Date: 20221024
  Receipt Date: 20221024
  Transmission Date: 20230113
  Serious: Yes (Hospitalization)
  Sender: FDA-Public Use
  Company Number: None

PATIENT
  Age: 75 Year
  Sex: Female
  Weight: 69.9 kg

DRUGS (17)
  1. CAPECITABINE [Suspect]
     Active Substance: CAPECITABINE
     Indication: Breast cancer female
     Dosage: FREQUENCY : TWICE A DAY;?
     Route: 048
  2. AMOXICILLIN [Concomitant]
  3. CALCIUM [Concomitant]
  4. CRANBERRY [Concomitant]
  5. ELIQUIS [Concomitant]
     Active Substance: APIXABAN
  6. GABAPENTIN [Concomitant]
  7. GEMCITAINE [Concomitant]
  8. LOVASTATIN [Concomitant]
  9. MOVANTIK [Concomitant]
  10. MULTIVITAMIN [Concomitant]
  11. ONDANSETRON [Concomitant]
  12. OXYCODONE [Concomitant]
  13. PROCHLORPERAZINE [Concomitant]
  14. PRORENAL+D [Concomitant]
  15. TYLENOL [Concomitant]
     Active Substance: ACETAMINOPHEN
  16. VITAMIN D3 [Concomitant]
  17. XGEVA [Concomitant]

REACTIONS (1)
  - Palmar-plantar erythrodysaesthesia syndrome [None]
